FAERS Safety Report 21193978 (Version 2)
Quarter: 2022Q3

REPORT INFORMATION
  Report Type: Spontaneous
  Country: US (occurrence: None)
  Receive Date: 20220810
  Receipt Date: 20220829
  Transmission Date: 20221026
  Serious: No
  Sender: FDA-Public Use
  Company Number: 2022A252714

PATIENT
  Sex: Female
  Weight: 47.6 kg

DRUGS (3)
  1. SYMBICORT [Suspect]
     Active Substance: BUDESONIDE\FORMOTEROL FUMARATE DIHYDRATE
     Indication: Lung disorder
     Dosage: 80/4.5, TWO PUFFS TWO TIMES A DAY
     Route: 055
  2. SYMBICORT [Suspect]
     Active Substance: BUDESONIDE\FORMOTEROL FUMARATE DIHYDRATE
     Indication: Fibrosis
     Dosage: 80/4.5, TWO PUFFS TWO TIMES A DAY
     Route: 055
  3. SYMBICORT [Suspect]
     Active Substance: BUDESONIDE\FORMOTEROL FUMARATE DIHYDRATE
     Indication: Emphysema
     Dosage: 80/4.5, TWO PUFFS TWO TIMES A DAY
     Route: 055

REACTIONS (8)
  - Illness [Unknown]
  - Dyspnoea [Unknown]
  - Visual impairment [Unknown]
  - Memory impairment [Unknown]
  - Somnolence [Unknown]
  - Product use issue [Unknown]
  - Intentional product misuse [Unknown]
  - Device delivery system issue [Unknown]
